FAERS Safety Report 4605015-6 (Version None)
Quarter: 2005Q1

REPORT INFORMATION
  Report Type: 
  Country: None (occurrence: None)
  Receive Date: 20050311
  Receipt Date: 20050301
  Transmission Date: 20050727
  Serious: Yes (Hospitalization)
  Sender: FDA-Public Use
  Company Number: US-JNJFOC-20050301085

PATIENT
  Age: 46 Year
  Sex: Female

DRUGS (12)
  1. RISPERDAL [Suspect]
     Indication: SCHIZOPHRENIA
     Route: 049
  2. RESTORIL [Concomitant]
     Indication: INSOMNIA
     Route: 049
  3. BENZTROPINE [Concomitant]
     Route: 049
  4. ZYPREXA [Concomitant]
     Indication: SCHIZOPHRENIA
     Route: 049
  5. CLONAZEPAM [Concomitant]
     Route: 049
  6. ABILIFY [Concomitant]
     Indication: LETHARGY
  7. NIFEDIPINE [Concomitant]
     Route: 049
  8. MOTRIN [Concomitant]
     Indication: PAIN
     Route: 049
  9. PREVACID [Concomitant]
     Indication: GASTROINTESTINAL DISORDER
     Route: 049
  10. LIPITOR [Concomitant]
     Indication: BLOOD CHOLESTEROL INCREASED
     Route: 049
  11. METROPROLOL [Concomitant]
     Route: 049
  12. THIOTHIXENE [Concomitant]
     Route: 049

REACTIONS (10)
  - ANOREXIA [None]
  - DIZZINESS [None]
  - DROOLING [None]
  - JOINT DISLOCATION [None]
  - MUSCULOSKELETAL STIFFNESS [None]
  - SALIVARY HYPERSECRETION [None]
  - SOMNOLENCE [None]
  - TREMOR [None]
  - URINARY INCONTINENCE [None]
  - WEIGHT DECREASED [None]
